FAERS Safety Report 13869402 (Version 1)
Quarter: 2017Q3

REPORT INFORMATION
  Report Type: Spontaneous
  Country: AR (occurrence: AR)
  Receive Date: 20170815
  Receipt Date: 20170815
  Transmission Date: 20171127
  Serious: Yes (Other)
  Sender: FDA-Public Use
  Company Number: AR-PFIZER INC-2017348855

PATIENT
  Age: 60 Year
  Sex: Female

DRUGS (3)
  1. IBRANCE [Suspect]
     Active Substance: PALBOCICLIB
     Dosage: UNK UNK, CYCLIC
  2. ZOLEDRONIC ACID [Concomitant]
     Active Substance: ZOLEDRONIC ACID
     Dosage: UNK
  3. FULVESTRANT. [Concomitant]
     Active Substance: FULVESTRANT
     Dosage: UNK

REACTIONS (9)
  - Thrombosis [Unknown]
  - Arthritis [Unknown]
  - Red blood cell count decreased [Unknown]
  - Nausea [Unknown]
  - Fatigue [Unknown]
  - Viral infection [Recovered/Resolved]
  - Pain [Unknown]
  - White blood cell count decreased [Unknown]
  - Vomiting [Unknown]
